FAERS Safety Report 13056454 (Version 5)
Quarter: 2017Q3

REPORT INFORMATION
  Report Type: Report from Study
  Country: US (occurrence: US)
  Receive Date: 20161222
  Receipt Date: 20170703
  Transmission Date: 20171127
  Serious: Yes (Disabling, Other)
  Sender: FDA-Public Use
  Company Number: US-SA-2016SA196058

PATIENT
  Age: 59 Year
  Sex: Female

DRUGS (6)
  1. AFRIN [Concomitant]
     Active Substance: OXYMETAZOLINE
     Dosage: NASAL SPRAY
     Route: 045
  2. GABAPENTIN. [Concomitant]
     Active Substance: GABAPENTIN
     Indication: MULTIPLE SCLEROSIS
  3. LEMTRADA [Suspect]
     Active Substance: ALEMTUZUMAB
     Indication: MULTIPLE SCLEROSIS
     Route: 041
     Dates: start: 20161003, end: 20161007
  4. LISINOPRIL. [Concomitant]
     Active Substance: LISINOPRIL
     Indication: HYPERTENSION
  5. CHLOROTHIAZIDE. [Concomitant]
     Active Substance: CHLOROTHIAZIDE
     Indication: BLOOD PRESSURE MEASUREMENT
  6. BACLOFEN. [Concomitant]
     Active Substance: BACLOFEN
     Indication: MULTIPLE SCLEROSIS

REACTIONS (9)
  - Blood creatine increased [Not Recovered/Not Resolved]
  - Respiratory disorder [Recovered/Resolved]
  - Epistaxis [Recovered/Resolved]
  - Gait disturbance [Not Recovered/Not Resolved]
  - Heart rate decreased [Recovered/Resolved]
  - Cataract [Recovering/Resolving]
  - Lipoma [Not Recovered/Not Resolved]
  - Arthropathy [Not Recovered/Not Resolved]
  - Petechiae [Recovered/Resolved]

NARRATIVE: CASE EVENT DATE: 2016
